FAERS Safety Report 16667185 (Version 1)
Quarter: 2019Q3

REPORT INFORMATION
  Report Type: Spontaneous
  Country: FR (occurrence: FR)
  Receive Date: 20190805
  Receipt Date: 20190805
  Transmission Date: 20191004
  Serious: Yes (Hospitalization)
  Sender: FDA-Public Use
  Company Number: FR-ACCORD-150176

PATIENT
  Age: 77 Year
  Sex: Female
  Weight: 59 kg

DRUGS (1)
  1. FLUOROURACIL. [Suspect]
     Active Substance: FLUOROURACIL
     Indication: GASTRIC CANCER
     Route: 042
     Dates: start: 20190626, end: 20190626

REACTIONS (3)
  - Product administration error [Unknown]
  - Device programming error [Unknown]
  - Wrong rate [Unknown]

NARRATIVE: CASE EVENT DATE: 20190627
